FAERS Safety Report 24203007 (Version 2)
Quarter: 2024Q3

REPORT INFORMATION
  Report Type: Spontaneous
  Country: US (occurrence: US)
  Receive Date: 20240813
  Receipt Date: 20240913
  Transmission Date: 20241016
  Serious: Yes (Other)
  Sender: BEIGENE
  Company Number: US-BEIGENE-BGN-2024-012457

PATIENT

DRUGS (4)
  1. BRUKINSA [Suspect]
     Active Substance: ZANUBRUTINIB
     Indication: Chronic lymphocytic leukaemia
     Dosage: 2 CAPSULES (160MG TOTAL) IN THE MORNING AND 2 CAPSULES (180 MG TOTAL)
     Route: 048
     Dates: start: 202401
  2. TIZANIDINE HYDROCHLORIDE [Concomitant]
     Active Substance: TIZANIDINE HYDROCHLORIDE
     Indication: Musculoskeletal stiffness
     Dosage: 2 MILLIGRAM TAKEN 3 TIMES A DAY AS NEEDED
     Dates: start: 202404
  3. ADVIL [Concomitant]
     Active Substance: IBUPROFEN\IBUPROFEN SODIUM
     Dosage: UNK, PRN
  4. TYLENOL [Concomitant]
     Active Substance: ACETAMINOPHEN
     Dosage: UNK, PRN

REACTIONS (8)
  - Neuropathy peripheral [Not Recovered/Not Resolved]
  - Lyme disease [Not Recovered/Not Resolved]
  - Compression fracture [Not Recovered/Not Resolved]
  - Hypoacusis [Recovering/Resolving]
  - Musculoskeletal stiffness [Unknown]
  - Bone scan abnormal [Not Recovered/Not Resolved]
  - Insomnia [Not Recovered/Not Resolved]
  - Weight decreased [Not Recovered/Not Resolved]

NARRATIVE: CASE EVENT DATE: 20240501
